FAERS Safety Report 18210938 (Version 2)
Quarter: 2021Q2

REPORT INFORMATION
  Report Type: Report from Study
  Country: AR (occurrence: AR)
  Receive Date: 20200830
  Receipt Date: 20210629
  Transmission Date: 20210717
  Serious: Yes (Life-Threatening, Other)
  Sender: FDA-Public Use
  Company Number: PHHY2019AR182533

PATIENT
  Age: 59 Year
  Sex: Female

DRUGS (5)
  1. REVOLADE [Suspect]
     Active Substance: ELTROMBOPAG OLAMINE
     Indication: IMMUNE THROMBOCYTOPENIA
     Dosage: 50 MG, QD (ONCE DAILY)
     Route: 065
     Dates: start: 20160101, end: 2018
  2. REVOLADE [Suspect]
     Active Substance: ELTROMBOPAG OLAMINE
     Dosage: 75 MG, UNK
     Route: 065
  3. REVOLADE [Suspect]
     Active Substance: ELTROMBOPAG OLAMINE
     Dosage: 50 MG, UNK
     Route: 065
  4. REVOLADE [Suspect]
     Active Substance: ELTROMBOPAG OLAMINE
     Dosage: 75 MG, UNK
     Route: 065
  5. REVOLADE [Suspect]
     Active Substance: ELTROMBOPAG OLAMINE
     Dosage: 25 MG, UNK
     Route: 065

REACTIONS (18)
  - Platelet count decreased [Unknown]
  - Depressed mood [Recovered/Resolved]
  - Anxiety [Recovered/Resolved]
  - Decreased appetite [Not Recovered/Not Resolved]
  - Joint swelling [Recovered/Resolved]
  - Memory impairment [Recovered/Resolved]
  - Drug intolerance [Not Recovered/Not Resolved]
  - Haematoma [Not Recovered/Not Resolved]
  - Haemorrhage [Not Recovered/Not Resolved]
  - Disturbance in attention [Recovered/Resolved]
  - Stress [Recovered/Resolved]
  - Hunger [Not Recovered/Not Resolved]
  - Arthralgia [Unknown]
  - Anger [Not Recovered/Not Resolved]
  - Gingival bleeding [Not Recovered/Not Resolved]
  - Depressed mood [Not Recovered/Not Resolved]
  - Fatigue [Not Recovered/Not Resolved]
  - Confusional state [Recovered/Resolved]

NARRATIVE: CASE EVENT DATE: 20160101
